FAERS Safety Report 9092123 (Version 1)
Quarter: 2013Q1

REPORT INFORMATION
  Report Type: Spontaneous
  Country: US (occurrence: US)
  Receive Date: 20130201
  Receipt Date: 20130201
  Transmission Date: 20140127
  Serious: Yes (Other)
  Sender: FDA-Public Use
  Company Number: US-AMGEN-USASP2013006135

PATIENT
  Age: 18 Year
  Sex: Female

DRUGS (1)
  1. ENBREL [Suspect]
     Indication: RHEUMATOID ARTHRITIS
     Dosage: 50 MG, QWK
     Dates: start: 20110601

REACTIONS (4)
  - Hypoaesthesia [Not Recovered/Not Resolved]
  - Local swelling [Not Recovered/Not Resolved]
  - Rash macular [Not Recovered/Not Resolved]
  - Injection site reaction [Not Recovered/Not Resolved]
